FAERS Safety Report 13168348 (Version 1)
Quarter: 2017Q1

REPORT INFORMATION
  Report Type: Spontaneous
  Country: US (occurrence: US)
  Receive Date: 20170131
  Receipt Date: 20170131
  Transmission Date: 20170428
  Serious: Yes (Hospitalization, Other)
  Sender: FDA-Public Use
  Company Number: US-JNJFOC-20170122422

PATIENT
  Age: 69 Year
  Sex: Female
  Weight: 65.77 kg

DRUGS (4)
  1. VALSARTAN. [Concomitant]
     Active Substance: VALSARTAN
     Indication: HYPERTENSION
     Route: 065
     Dates: start: 2012
  2. LEVAQUIN [Suspect]
     Active Substance: LEVOFLOXACIN
     Indication: UPPER RESPIRATORY TRACT INFECTION
     Route: 048
     Dates: start: 20160312, end: 20160313
  3. SYNTHROID [Concomitant]
     Active Substance: LEVOTHYROXINE SODIUM
     Indication: THYROID DISORDER
     Route: 065
     Dates: start: 1993
  4. SYNTHROID [Concomitant]
     Active Substance: LEVOTHYROXINE SODIUM
     Indication: THYROIDECTOMY
     Route: 065
     Dates: start: 1993

REACTIONS (11)
  - Diarrhoea [Recovered/Resolved]
  - Malaise [Unknown]
  - Ear pain [Unknown]
  - Depression [Recovering/Resolving]
  - Dysphagia [Unknown]
  - Hospitalisation [Unknown]
  - Dehydration [Unknown]
  - Throat tightness [Unknown]
  - Tremor [Unknown]
  - Headache [Unknown]
  - Abnormal loss of weight [Recovered/Resolved]

NARRATIVE: CASE EVENT DATE: 2016
